FAERS Safety Report 4633953-7 (Version None)
Quarter: 2005Q2

REPORT INFORMATION
  Report Type: 
  Country: None (occurrence: None)
  Receive Date: 20050407
  Receipt Date: 20040824
  Transmission Date: 20051028
  Serious: Yes (Hospitalization)
  Sender: FDA-Public Use
  Company Number: 2004-BP-07275AU

PATIENT
  Age: 61 Year
  Sex: Female

DRUGS (1)
  1. MOBIC [Suspect]
     Indication: BACK PAIN
     Dosage: 7.5 MG (7.5 MG 7.5MG ORALLY DAILY)
     Route: 048
     Dates: start: 20030405, end: 20030419

REACTIONS (2)
  - HAEMORRHAGIC STROKE [None]
  - OFF LABEL USE [None]
